FAERS Safety Report 9094326 (Version 1)
Quarter: 2013Q1

REPORT INFORMATION
  Report Type: Spontaneous
  Country: US (occurrence: None)
  Receive Date: 20130122
  Receipt Date: 20130122
  Transmission Date: 20140127
  Serious: Yes (Death, Other)
  Sender: FDA-Public Use
  Company Number: AUR-APL-2013-00654

PATIENT
  Age: 19 Year
  Sex: Female

DRUGS (2)
  1. ALPRAZOLAM (ALPRAZOLAM) [Suspect]
     Indication: PRODUCT USED FOR UNKNOWN INDICATION
     Dosage: ORAL
     Route: 048
  2. FLUOXETINE [Suspect]
     Indication: PRODUCT USED FOR UNKNOWN INDICATION
     Dosage: ORAL
     Route: 048

REACTIONS (12)
  - Completed suicide [None]
  - Unresponsive to stimuli [None]
  - Pulse absent [None]
  - Apnoea [None]
  - Coma [None]
  - Blood pH decreased [None]
  - Hypoxic-ischaemic encephalopathy [None]
  - Toxicity to various agents [None]
  - Overdose [None]
  - Brain oedema [None]
  - Brain death [None]
  - Cerebral ischaemia [None]
